FAERS Safety Report 7117838-2 (Version None)
Quarter: 2010Q4

REPORT INFORMATION
  Report Type: 
  Country: None (occurrence: None)
  Receive Date: 20101118
  Receipt Date: 20101118
  Transmission Date: 20110411
  Serious: No
  Sender: FDA-Public Use
  Company Number: None

PATIENT
  Sex: Female
  Weight: 63.5036 kg

DRUGS (1)
  1. RECLAST [Suspect]
     Dosage: 1 SHOT
     Dates: start: 20100201, end: 20100101

REACTIONS (2)
  - FATIGUE [None]
  - PAIN [None]
